FAERS Safety Report 16748498 (Version 2)
Quarter: 2019Q3

REPORT INFORMATION
  Report Type: Spontaneous
  Country: CA (occurrence: CA)
  Receive Date: 20190828
  Receipt Date: 20190920
  Transmission Date: 20191005
  Serious: Yes (Hospitalization)
  Sender: FDA-Public Use
  Company Number: CA-CELLTRION INC.-2019CA023416

PATIENT

DRUGS (3)
  1. INFLECTRA [Suspect]
     Active Substance: INFLIXIMAB-DYYB
     Indication: PYODERMA GANGRENOSUM
     Dosage: 500 MG, WEEK 0 THEN 700 MG WEEK2
     Route: 042
     Dates: start: 20190729, end: 20190729
  2. INFLECTRA [Suspect]
     Active Substance: INFLIXIMAB-DYYB
     Dosage: 700 MG, WEEK 2, 6, THEN Q 8 WEEKS
     Route: 042
     Dates: start: 20190910
  3. INFLECTRA [Suspect]
     Active Substance: INFLIXIMAB-DYYB
     Dosage: 700 00 MG, WEEK 2, 6, THEN Q 8 WEEKS
     Route: 042
     Dates: start: 20190813, end: 20190813

REACTIONS (7)
  - Blood pressure fluctuation [Unknown]
  - Contraindicated product prescribed [Unknown]
  - Product use in unapproved indication [Unknown]
  - Limb injury [Recovering/Resolving]
  - Off label use [Unknown]
  - Bacterial disease carrier [Unknown]
  - Skin ulcer [Unknown]

NARRATIVE: CASE EVENT DATE: 20190729
